FAERS Safety Report 25787743 (Version 1)
Quarter: 2025Q3

REPORT INFORMATION
  Report Type: Spontaneous
  Country: US (occurrence: None)
  Receive Date: 20250910
  Receipt Date: 20250910
  Transmission Date: 20251020
  Serious: Yes (Other)
  Sender: FDA-CTU
  Company Number: None

PATIENT
  Age: 81 Year
  Sex: Female

DRUGS (6)
  1. CIMZIA [Suspect]
     Active Substance: CERTOLIZUMAB PEGOL
     Indication: Psoriasis
     Route: 058
     Dates: start: 20221104
  2. CELEBREX [Concomitant]
     Active Substance: CELECOXIB
  3. MONTELUKAST SODIUM [Concomitant]
     Active Substance: MONTELUKAST SODIUM
  4. MYRBETRIQ TAB 25MG [Concomitant]
  5. TESSALON PER CAP 100MG [Concomitant]
  6. VENLAFAXINE TAB 100MG [Concomitant]

REACTIONS (5)
  - Rash [None]
  - Discomfort [None]
  - Malignant melanoma [None]
  - Therapy interrupted [None]
  - Psoriasis [None]

NARRATIVE: CASE EVENT DATE: 20241201
